FAERS Safety Report 8100430-0 (Version None)
Quarter: 2012Q1

REPORT INFORMATION
  Report Type: 
  Country: None (occurrence: None)
  Receive Date: 20120129
  Receipt Date: 20111104
  Transmission Date: 20120608
  Serious: No
  Sender: FDA-Public Use
  Company Number: US-ABBOTT-11P-163-0867085-00

PATIENT
  Sex: Female

DRUGS (9)
  1. HUMIRA [Suspect]
     Indication: PSORIATIC ARTHROPATHY
     Dates: start: 20111028
  2. CRESTOR [Concomitant]
     Indication: BLOOD CHOLESTEROL
     Route: 048
  3. DIABETIC INJECTION [Concomitant]
     Indication: DIABETES MELLITUS
  4. VICTOZA [Concomitant]
     Indication: DIABETES MELLITUS
     Route: 048
  5. KEPPRA [Concomitant]
     Indication: CONVULSION
     Route: 048
  6. OTHER MEDICATIONS [Concomitant]
     Indication: PRODUCT USED FOR UNKNOWN INDICATION
  7. GLIMEPIRIDE [Concomitant]
     Indication: DIABETES MELLITUS
     Route: 048
  8. HUMIRA [Suspect]
     Indication: PSORIASIS
     Dosage: DAY 1
     Route: 058
     Dates: start: 20110927
  9. ONGLYZA [Concomitant]
     Indication: DIABETES MELLITUS
     Route: 048

REACTIONS (2)
  - INJECTION SITE PAIN [None]
  - INJECTION SITE HAEMATOMA [None]
